FAERS Safety Report 8547777-1 (Version None)
Quarter: 2012Q3

REPORT INFORMATION
  Report Type: 
  Country: None (occurrence: None)
  Receive Date: 20120727
  Receipt Date: 20120113
  Transmission Date: 20120928
  Serious: Yes (Other)
  Sender: FDA-Public Use
  Company Number: US-ASTRAZENECA-2012SE00828

PATIENT
  Age: 51 Year
  Sex: Male
  Weight: 74.8 kg

DRUGS (2)
  1. SEROQUEL [Suspect]
     Indication: BIPOLAR DISORDER
     Dosage: 200 MG IN THE MORNING, 200 MG AT LUNCH, 200 MG AT DINNER AND 400 MG AT BED TIME
     Route: 048
     Dates: start: 20090101
  2. SEROQUEL [Suspect]
     Indication: DEPRESSION
     Dosage: 200 MG IN THE MORNING, 200 MG AT LUNCH, 200 MG AT DINNER AND 400 MG AT BED TIME
     Route: 048
     Dates: start: 20090101

REACTIONS (2)
  - DRUG DOSE OMISSION [None]
  - SUICIDAL IDEATION [None]
